FAERS Safety Report 11323706 (Version 1)
Quarter: 2015Q3

REPORT INFORMATION
  Report Type: Spontaneous
  Country: US (occurrence: None)
  Receive Date: 20150729
  Receipt Date: 20150729
  Transmission Date: 20151125
  Serious: Yes (Other)
  Sender: FDA-Public Use
  Company Number: None

PATIENT
  Age: 56 Year
  Sex: Female

DRUGS (1)
  1. CLINDAMYCIN [Suspect]
     Active Substance: CLINDAMYCIN\CLINDAMYCIN PHOSPHATE
     Indication: ROOT CANAL INFECTION
     Dosage: 2  QID ORAL
     Route: 048
     Dates: start: 20150724, end: 20150726

REACTIONS (4)
  - Abdominal pain upper [None]
  - Gastrointestinal pain [None]
  - Pain [None]
  - Abdominal pain [None]

NARRATIVE: CASE EVENT DATE: 20150724
